FAERS Safety Report 12294640 (Version 1)
Quarter: 2016Q2

REPORT INFORMATION
  Report Type: Spontaneous
  Country: IT (occurrence: IT)
  Receive Date: 20160422
  Receipt Date: 20160422
  Transmission Date: 20160815
  Serious: Yes (Hospitalization)
  Sender: FDA-Public Use
  Company Number: IT-SUN PHARMACEUTICAL INDUSTRIES LTD-2016RR-115365

PATIENT
  Age: 63 Year
  Sex: Female

DRUGS (9)
  1. ZYLORIC 300 MG [Suspect]
     Active Substance: ALLOPURINOL
     Indication: HYPERURICAEMIA
     Dosage: 300 MG DAILY
     Route: 048
     Dates: start: 20160215, end: 20160317
  2. ACICLOVIR [Suspect]
     Active Substance: ACYCLOVIR
     Indication: ANTIVIRAL PROPHYLAXIS
     Dosage: 400 MG DAILY
     Route: 048
  3. FLECAINIDE [Concomitant]
     Active Substance: FLECAINIDE
     Indication: ARRHYTHMIA
     Dosage: 150 MG
     Route: 048
  4. ZARZIO 30MU(60MU/ML) [Suspect]
     Active Substance: FILGRASTIM
     Indication: NEUTROPENIA
     Dosage: 30 LU DAILY
     Route: 058
     Dates: start: 20160309, end: 20160310
  5. OMEPRAZOLE. [Suspect]
     Active Substance: OMEPRAZOLE
     Indication: PROPHYLAXIS AGAINST GASTROINTESTINAL ULCER
     Dosage: 20 MG DAILY
     Route: 048
  6. LEVOFLOXACINA TEVA 500 MG [Suspect]
     Active Substance: LEVOFLOXACIN
     Indication: NEUTROPENIA
     Dosage: 500 MG DAILY
     Route: 048
     Dates: start: 20160308, end: 20160312
  7. BISOPROLOL HEMIFUMARATE [Concomitant]
     Active Substance: BISOPROLOL FUMARATE
     Indication: ARRHYTHMIA
     Dosage: 1.25 MG
     Route: 048
  8. REVLIMID [Suspect]
     Active Substance: LENALIDOMIDE
     Indication: PLASMA CELL MYELOMA
     Dosage: 25 MG DAILY
     Route: 048
     Dates: start: 20160224, end: 20160315
  9. DIFLUCAN [Concomitant]
     Active Substance: FLUCONAZOLE
     Indication: ANTIFUNGAL PROPHYLAXIS
     Dosage: 400 MG
     Route: 048

REACTIONS (2)
  - Rash morbilliform [Recovered/Resolved]
  - Erythema [Recovered/Resolved]

NARRATIVE: CASE EVENT DATE: 20160311
